FAERS Safety Report 20992164 (Version 1)
Quarter: 2022Q2

REPORT INFORMATION
  Report Type: Spontaneous
  Country: US (occurrence: US)
  Receive Date: 20220622
  Receipt Date: 20220622
  Transmission Date: 20220721
  Serious: Yes (Hospitalization, Other)
  Sender: FDA-Public Use
  Company Number: US-NOVARTISPH-NVSC2022US140736

PATIENT
  Age: 36 Year
  Sex: Female

DRUGS (9)
  1. ONDANSETRON [Suspect]
     Active Substance: ONDANSETRON
     Indication: Nausea
     Dosage: UNK
     Route: 065
  2. ONDANSETRON [Suspect]
     Active Substance: ONDANSETRON
     Indication: Vomiting
  3. SERTRALINE [Suspect]
     Active Substance: SERTRALINE HYDROCHLORIDE
     Indication: Decreased interest
     Dosage: 50 MG, QD
     Route: 065
  4. LURASIDONE [Suspect]
     Active Substance: LURASIDONE
     Indication: Antipsychotic therapy
     Dosage: 80 MG, QD
     Route: 065
  5. LURASIDONE [Suspect]
     Active Substance: LURASIDONE
     Dosage: 120 MG, QD
     Route: 065
  6. BUSPIRONE [Suspect]
     Active Substance: BUSPIRONE HYDROCHLORIDE
     Indication: Antipsychotic therapy
     Dosage: 30 MG, BID
     Route: 065
  7. CAFFEINE [Concomitant]
     Active Substance: CAFFEINE
     Indication: Nausea
     Dosage: UNK
     Route: 065
  8. CAFFEINE [Concomitant]
     Active Substance: CAFFEINE
     Indication: Vomiting
  9. CLONAZEPAM [Concomitant]
     Active Substance: CLONAZEPAM
     Indication: Antipsychotic therapy
     Dosage: 4 MG, QD
     Route: 065

REACTIONS (1)
  - Serotonin syndrome [Recovered/Resolved]
